FAERS Safety Report 15074623 (Version 1)
Quarter: 2018Q2

REPORT INFORMATION
  Report Type: Spontaneous
  Country: US (occurrence: US)
  Receive Date: 20180627
  Receipt Date: 20180627
  Transmission Date: 20180711
  Serious: Yes (Other)
  Sender: FDA-Public Use
  Company Number: US-SAOL THERAPEUTICS-2018SAO00807

PATIENT
  Age: 68 Year
  Sex: Male

DRUGS (2)
  1. LIORESAL [Suspect]
     Active Substance: BACLOFEN
     Dosage: 99.74 ?G, \DAY
     Route: 037
     Dates: start: 20180521
  2. LIORESAL [Suspect]
     Active Substance: BACLOFEN
     Dosage: 100 UNK, UNK
     Route: 037

REACTIONS (3)
  - Device malfunction [Recovered/Resolved]
  - Therapy non-responder [Recovered/Resolved]
  - Complication associated with device [Recovered/Resolved]

NARRATIVE: CASE EVENT DATE: 20180517
